FAERS Safety Report 5902846-7 (Version None)
Quarter: 2008Q3

REPORT INFORMATION
  Report Type: 
  Country: None (occurrence: None)
  Receive Date: 20080929
  Receipt Date: 20080929
  Transmission Date: 20090109
  Serious: Yes (Hospitalization)
  Sender: FDA-Public Use
  Company Number: None

PATIENT
  Age: 21 Year
  Sex: Male
  Weight: 78.2 kg

DRUGS (1)
  1. PENICILLIN [Suspect]
     Dosage: ONCE IM
     Route: 030
     Dates: start: 20080609, end: 20080609

REACTIONS (5)
  - ABDOMINAL PAIN [None]
  - ANGIOEDEMA [None]
  - DRUG HYPERSENSITIVITY [None]
  - SKIN LESION [None]
  - SKIN ULCER [None]
